FAERS Safety Report 16413277 (Version 1)
Quarter: 2019Q2

REPORT INFORMATION
  Report Type: Spontaneous
  Country: US (occurrence: US)
  Receive Date: 20190611
  Receipt Date: 20190611
  Transmission Date: 20190711
  Serious: No
  Sender: FDA-Public Use
  Company Number: US-BIOGEN-2018BI00505357

PATIENT
  Sex: Female

DRUGS (1)
  1. AVONEX [Suspect]
     Active Substance: INTERFERON BETA-1A
     Indication: MULTIPLE SCLEROSIS
     Route: 050
     Dates: start: 20070918

REACTIONS (5)
  - Influenza like illness [Unknown]
  - Chills [Recovered/Resolved with Sequelae]
  - Pain [Unknown]
  - Lethargy [Recovered/Resolved with Sequelae]
  - Migraine [Recovered/Resolved with Sequelae]
